FAERS Safety Report 10262236 (Version 1)
Quarter: 2014Q2

REPORT INFORMATION
  Report Type: Spontaneous
  Country: DK (occurrence: DK)
  Receive Date: 20140626
  Receipt Date: 20140626
  Transmission Date: 20141212
  Serious: Yes (Disabling)
  Sender: FDA-Public Use
  Company Number: DK-ACTAVIS-2014-13438

PATIENT
  Age: 59 Year
  Sex: Female
  Weight: 75 kg

DRUGS (2)
  1. PACLITAXEL ACTAVIS [Suspect]
     Indication: OVARIAN CANCER
     Dosage: 315 MG, UNKNOWN; STYRKE: 6 MG/ML.
     Route: 042
     Dates: start: 20130110, end: 20130611
  2. CARBOPLATIN [Concomitant]
     Indication: OVARIAN CANCER
     Dosage: 650 MG, UNKNOWN
     Route: 065
     Dates: start: 20130110, end: 20130611

REACTIONS (11)
  - Tenosynovitis [Recovering/Resolving]
  - Skin irritation [Unknown]
  - Pain in extremity [Unknown]
  - Nodule [Unknown]
  - Joint swelling [Unknown]
  - Arthralgia [Unknown]
  - Feeling cold [Unknown]
  - Skin fissures [Unknown]
  - Hypokinesia [Unknown]
  - Musculoskeletal stiffness [Unknown]
  - Local swelling [Unknown]
